FAERS Safety Report 23622852 (Version 1)
Quarter: 2024Q1

REPORT INFORMATION
  Report Type: Spontaneous
  Country: US (occurrence: US)
  Receive Date: 20240312
  Receipt Date: 20240312
  Transmission Date: 20240410
  Serious: No
  Sender: FDA-Public Use
  Company Number: US-PFIZER INC-PV202400033544

PATIENT
  Age: 44 Year
  Sex: Female

DRUGS (1)
  1. XELJANZ XR [Suspect]
     Active Substance: TOFACITINIB CITRATE
     Dosage: UNK

REACTIONS (6)
  - Nasal dryness [Recovering/Resolving]
  - Epistaxis [Recovering/Resolving]
  - Foreign body in respiratory tract [Unknown]
  - Pain [Unknown]
  - Discomfort [Unknown]
  - Product dose omission issue [Unknown]
